FAERS Safety Report 19884152 (Version 1)
Quarter: 2021Q3

REPORT INFORMATION
  Report Type: Spontaneous
  Country: CA (occurrence: CA)
  Receive Date: 20210925
  Receipt Date: 20210925
  Transmission Date: 20211014
  Serious: Yes (Hospitalization)
  Sender: FDA-Public Use
  Company Number: None

PATIENT
  Age: 34 Year
  Sex: Female
  Weight: 58.5 kg

DRUGS (4)
  1. CANNABIS [Concomitant]
     Active Substance: CANNABIS SATIVA SUBSP. INDICA TOP
  2. LOXAPINE [LOXAPINE HYDROCHLORIDE] [Suspect]
     Active Substance: LOXAPINE HYDROCHLORIDE
     Indication: MENTAL DISORDER
     Dosage: ?          OTHER FREQUENCY:UNKNOWN;?
     Route: 030
     Dates: start: 20210323, end: 20210507
  3. CBD OIL [Concomitant]
     Active Substance: CANNABIDIOL\HERBALS
  4. MULTIVITAMIN [Concomitant]
     Active Substance: VITAMINS

REACTIONS (4)
  - Insomnia [None]
  - Mania [None]
  - Therapy non-responder [None]
  - Contusion [None]

NARRATIVE: CASE EVENT DATE: 20210323
